FAERS Safety Report 23240895 (Version 1)
Quarter: 2023Q4

REPORT INFORMATION
  Report Type: Spontaneous
  Country: CO (occurrence: CO)
  Receive Date: 20231129
  Receipt Date: 20231129
  Transmission Date: 20240109
  Serious: Yes (Other)
  Sender: FDA-Public Use
  Company Number: CO-CURIUM-2023000859

PATIENT
  Age: 55 Year
  Sex: Male

DRUGS (3)
  1. SODIUM IODIDE I-131 [Suspect]
     Active Substance: SODIUM IODIDE I-131
     Indication: Thyroid cancer
     Route: 065
  2. SODIUM IODIDE I-131 [Suspect]
     Active Substance: SODIUM IODIDE I-131
     Indication: Thyroid cancer
     Route: 065
  3. THYROTROPIN [Concomitant]
     Active Substance: THYROTROPIN
     Indication: Blood thyroid stimulating hormone
     Route: 065

REACTIONS (2)
  - Metastasis [Unknown]
  - Alopecia [Unknown]
